FAERS Safety Report 11130347 (Version 1)
Quarter: 2015Q2

REPORT INFORMATION
  Report Type: Spontaneous
  Country: NL (occurrence: NL)
  Receive Date: 20150522
  Receipt Date: 20150522
  Transmission Date: 20150821
  Serious: Yes (Other)
  Sender: FDA-Public Use
  Company Number: NL-ROCHE-1572467

PATIENT
  Age: 54 Year
  Sex: Female

DRUGS (9)
  1. FLUCLOXACILLIN [Interacting]
     Active Substance: FLUCLOXACILLIN
     Indication: INFECTION
     Route: 042
  2. VALPROIC ACID. [Interacting]
     Active Substance: VALPROIC ACID
     Route: 048
  3. RIFAMPICIN [Interacting]
     Active Substance: RIFAMPIN
     Indication: INFECTION
     Route: 042
  4. RIFAMPICIN [Interacting]
     Active Substance: RIFAMPIN
     Route: 048
  5. VALPROIC ACID. [Interacting]
     Active Substance: VALPROIC ACID
     Indication: EPILEPSY
     Route: 048
  6. CARBAMAZEPINE. [Interacting]
     Active Substance: CARBAMAZEPINE
     Indication: EPILEPSY
     Route: 048
  7. CARBAMAZEPINE. [Interacting]
     Active Substance: CARBAMAZEPINE
     Route: 048
  8. CLONAZEPAM. [Suspect]
     Active Substance: CLONAZEPAM
     Indication: EPILEPSY
     Route: 048
  9. CARBAMAZEPINE. [Interacting]
     Active Substance: CARBAMAZEPINE
     Route: 048

REACTIONS (2)
  - Seizure [Recovered/Resolved]
  - Drug interaction [Unknown]
